FAERS Safety Report 4649408-X (Version None)
Quarter: 2005Q2

REPORT INFORMATION
  Report Type: 
  Country: None (occurrence: None)
  Receive Date: 20050428
  Receipt Date: 20050428
  Transmission Date: 20051028
  Serious: Yes (Life-Threatening, Hospitalization)
  Sender: FDA-Public Use
  Company Number: None

PATIENT
  Age: 63 Year
  Sex: Male
  Weight: 56.9 kg

DRUGS (9)
  1. LISINOPRIL AND HYDROCHLOROTHIAZIDE [Suspect]
     Indication: HYPERTENSION
     Dosage: 1 TAB PO QD
     Route: 048
     Dates: start: 20050107, end: 20050108
  2. ASPIRIN/DIPYRIDAMOLE [Concomitant]
  3. FELODIPINE [Concomitant]
  4. HYDROCHLOROTHIAZIDE [Concomitant]
  5. MILK OF MAGNESIA [Concomitant]
  6. PENTOXIFYLLINE [Concomitant]
  7. SENNOSIDES [Concomitant]
  8. SILDENAFIL [Concomitant]
  9. SIMVASTATIN [Concomitant]

REACTIONS (1)
  - SWELLING FACE [None]
